FAERS Safety Report 7434602-5 (Version None)
Quarter: 2011Q2

REPORT INFORMATION
  Report Type: 
  Country: None (occurrence: None)
  Receive Date: 20110421
  Receipt Date: 20110421
  Transmission Date: 20111010
  Serious: Yes (Life-Threatening, Hospitalization, Other)
  Sender: FDA-Public Use
  Company Number: None

PATIENT
  Age: 64 Year
  Sex: Female
  Weight: 66.8 kg

DRUGS (9)
  1. COUMADIN [Concomitant]
  2. METOPROLOL SUCCINATE [Concomitant]
  3. HYDROCHOLOTHIAZIDE [Concomitant]
  4. ALPRAZOLAM [Concomitant]
  5. PANTOPRAZOLE [Suspect]
     Indication: GASTROOESOPHAGEAL REFLUX DISEASE
     Dosage: 40 MGS ONCE DAILY ORAL
     Route: 048
     Dates: start: 20110306, end: 20110327
  6. PANTOPRAZOLE [Suspect]
     Indication: HIATUS HERNIA
     Dosage: 40 MGS ONCE DAILY ORAL
     Route: 048
     Dates: start: 20110306, end: 20110327
  7. ACIPHEX [Concomitant]
  8. ALENDRONATE SODIUM [Concomitant]
  9. ACETAMINOPHEN [Concomitant]

REACTIONS (11)
  - FATIGUE [None]
  - HAEMATEMESIS [None]
  - DECREASED APPETITE [None]
  - EMOTIONAL DISORDER [None]
  - BALANCE DISORDER [None]
  - VERTIGO [None]
  - ABDOMINAL DISCOMFORT [None]
  - HYPERTENSION [None]
  - MIGRAINE [None]
  - DIZZINESS [None]
  - DYSPEPSIA [None]
